FAERS Safety Report 9195821 (Version 1)
Quarter: 2013Q1

REPORT INFORMATION
  Report Type: Spontaneous
  Country: US (occurrence: None)
  Receive Date: 20130319
  Receipt Date: 20130319
  Transmission Date: 20140127
  Serious: Yes (Hospitalization)
  Sender: FDA-Public Use
  Company Number: 2012033233

PATIENT
  Age: 66 Year
  Sex: Female
  Weight: 88 kg

DRUGS (7)
  1. HIZENTRA (IMMUNOGLOBULIN HUMAN NORMAL) [Suspect]
     Indication: CONGENITAL HYPOGAMMAGLOBULINAEMIA
     Dosage: (4 SITES OVER 1-2 HR)
     Route: 058
     Dates: start: 20120824, end: 20120824
  2. DIPHENHYDRAMINE (DIPHENHYDRAMINE) [Concomitant]
  3. LIDOCAINE/PRILOCAINE (EMLA/00775501) [Concomitant]
  4. EPI-PEN (EPINEPHRINE HYDROCHLORIDE) [Concomitant]
  5. ALBUTEROL (SALBUTAMOL) [Concomitant]
  6. ACETAMINOPHEN (PARACETAMOL) [Concomitant]
  7. ALEVE-D (NAPROXEN SODIUM W/PSEUDOEPHEDRINE HCL) [Concomitant]

REACTIONS (15)
  - Throat tightness [None]
  - Throat irritation [None]
  - Throat irritation [None]
  - Sinus headache [None]
  - Oropharyngeal swelling [None]
  - Sinus disorder [None]
  - Rash [None]
  - Asthenia [None]
  - Urinary bladder haemorrhage [None]
  - Urine ketone body present [None]
  - Protein urine present [None]
  - Swollen tongue [None]
  - Urticaria [None]
  - Heart rate abnormal [None]
  - Orthostatic hypotension [None]
